FAERS Safety Report 21636341 (Version 1)
Quarter: 2022Q4

REPORT INFORMATION
  Report Type: Report from Study
  Country: US (occurrence: US)
  Receive Date: 20221124
  Receipt Date: 20221124
  Transmission Date: 20230113
  Serious: No
  Sender: FDA-Public Use
  Company Number: US-ABBVIE-22K-163-4481985-00

PATIENT
  Age: 81 Year
  Sex: Female

DRUGS (1)
  1. IMBRUVICA [Suspect]
     Active Substance: IBRUTINIB
     Indication: Chronic lymphocytic leukaemia
     Route: 048

REACTIONS (9)
  - Myalgia [Unknown]
  - Nausea [Unknown]
  - Abdominal pain upper [Unknown]
  - Pain in extremity [Not Recovered/Not Resolved]
  - Pain [Not Recovered/Not Resolved]
  - Fatigue [Not Recovered/Not Resolved]
  - Headache [Unknown]
  - Feeling abnormal [Unknown]
  - Dizziness [Unknown]

NARRATIVE: CASE EVENT DATE: 20220701
